FAERS Safety Report 10913004 (Version 1)
Quarter: 2015Q1

REPORT INFORMATION
  Report Type: Spontaneous
  Country: US (occurrence: None)
  Receive Date: 20150310
  Receipt Date: 20150310
  Transmission Date: 20150721
  Serious: No
  Sender: FDA-Public Use
  Company Number: None

PATIENT
  Age: 52 Year
  Sex: Female
  Weight: 87.54 kg

DRUGS (7)
  1. TRILIPIX [Concomitant]
     Active Substance: FENOFIBRIC ACID
  2. VITAMIN B COMPLEX [Concomitant]
     Active Substance: CYANOCOBALAMIN\DEXPANTHENOL\NIACINAMIDE\PYRIDOXINE HYDROCHLORIDE\RIBOFLAVIN 5^-PHOSPHATE SODIUM\THIAMINE HYDROCHLORIDE\VITAMIN B COMPLEX
  3. WOMENS ONE A DAY VITAMIN [Concomitant]
  4. FISH OIL [Concomitant]
     Active Substance: FISH OIL
  5. PHENTERMINE 37.5 MG UNKNOWN PILL IS MARKED MP 273 [Suspect]
     Active Substance: PHENTERMINE
     Indication: DECREASED APPETITE
     Route: 048
     Dates: start: 20150116, end: 20150306
  6. VITAMIN C [Concomitant]
     Active Substance: ASCORBIC ACID
  7. IRON [Concomitant]
     Active Substance: IRON

REACTIONS (6)
  - Product formulation issue [None]
  - Migraine [None]
  - Product counterfeit [None]
  - Drug ineffective [None]
  - Dry mouth [None]
  - Product substitution issue [None]

NARRATIVE: CASE EVENT DATE: 20150116
